FAERS Safety Report 9259174 (Version 1)
Quarter: 2013Q2

REPORT INFORMATION
  Report Type: Spontaneous
  Country: SI (occurrence: SI)
  Receive Date: 20130426
  Receipt Date: 20130426
  Transmission Date: 20140414
  Serious: Yes (Hospitalization)
  Sender: FDA-Public Use
  Company Number: SI-SANOFI-AVENTIS-2013SA041265

PATIENT
  Age: 84 Year
  Sex: Female

DRUGS (18)
  1. CLEXANE [Suspect]
     Indication: PROPHYLAXIS
     Route: 058
     Dates: end: 20130326
  2. CLEXANE [Suspect]
     Indication: PROPHYLAXIS
     Dosage: 0.2 ML+ 0,8ML
     Route: 058
     Dates: start: 20130327, end: 20130327
  3. CLEXANE [Suspect]
     Indication: PROPHYLAXIS
     Dosage: 0.8 ML+ 0,6ML
     Route: 058
     Dates: start: 20130328
  4. MAREVAN [Suspect]
     Indication: PULMONARY EMBOLISM
     Route: 048
     Dates: start: 20130327
  5. MAREVAN [Suspect]
     Indication: PULMONARY EMBOLISM
     Route: 048
     Dates: start: 20130328, end: 20130329
  6. TONOCARDIN [Concomitant]
  7. AMLODIPINE [Concomitant]
  8. CONCOR [Concomitant]
  9. PANTOPRAZOLE SODIUM [Concomitant]
  10. ANALGIN [Concomitant]
  11. EDEMID [Concomitant]
  12. MAGNESIUM SULFATE [Concomitant]
  13. ATORVASTATIN [Concomitant]
  14. KALINOR [Concomitant]
     Dosage: 1 TBL. PER DAY
  15. TIMOPTIC [Concomitant]
     Dosage: 1 GTT IN THE LEFT EYE
  16. XALATAN [Concomitant]
     Dosage: 1 GTT IN THE LEFT EYE
  17. COSOPT [Concomitant]
     Dosage: 2 GTT IN THE RIGHT EYE
  18. PARACETAMOL [Concomitant]

REACTIONS (6)
  - Malaise [Recovered/Resolved]
  - Pulmonary embolism [Recovered/Resolved]
  - Drug ineffective [Unknown]
  - Haematochezia [Recovered/Resolved]
  - Melaena [Recovered/Resolved]
  - Anaemia [Recovered/Resolved]
